FAERS Safety Report 5533434-2 (Version None)
Quarter: 2007Q4

REPORT INFORMATION
  Report Type: 
  Country: None (occurrence: None)
  Receive Date: 20071204
  Receipt Date: 20070924
  Transmission Date: 20080405
  Serious: Yes (Hospitalization)
  Sender: FDA-Public Use
  Company Number: US-ASTRAZENECA-2007UW16994

PATIENT
  Age: 16718 Day
  Sex: Male
  Weight: 84.1 kg

DRUGS (8)
  1. SEROQUEL [Suspect]
     Indication: DEPRESSION
     Route: 048
     Dates: start: 20000616, end: 20010508
  2. RISPERDAL [Concomitant]
     Dosage: 2 MG, 4 MG
  3. ZYPREXA [Concomitant]
  4. REMERON [Concomitant]
  5. TRAZODONE HCL [Concomitant]
     Dosage: 50, 100, 150, 200 MG
  6. PAXIL [Concomitant]
     Dosage: 10, 20, 30, 40 MG
  7. ZOLOFT [Concomitant]
     Dosage: 20, 50, 100 MG
  8. AMBIEN [Concomitant]

REACTIONS (13)
  - BLOOD CHOLESTEROL INCREASED [None]
  - BLOOD TRIGLYCERIDES NORMAL [None]
  - CHEST PAIN [None]
  - DIABETIC COMPLICATION [None]
  - DIABETIC NEPHROPATHY [None]
  - DRUG ADMINISTRATION ERROR [None]
  - HEADACHE [None]
  - HYPERTENSION [None]
  - POLYDIPSIA [None]
  - POLYURIA [None]
  - TINNITUS [None]
  - TYPE 2 DIABETES MELLITUS [None]
  - URINARY HESITATION [None]
